FAERS Safety Report 21469590 (Version 2)
Quarter: 2022Q4

REPORT INFORMATION
  Report Type: Spontaneous
  Country: US (occurrence: US)
  Receive Date: 20221018
  Receipt Date: 20221108
  Transmission Date: 20230112
  Serious: Yes (Other)
  Sender: FDA-Public Use
  Company Number: US-SA-SAC20221013001065

PATIENT
  Age: 18 Year
  Sex: Male

DRUGS (1)
  1. ELOCTATE [Suspect]
     Active Substance: EFMOROCTOCOG ALFA
     Dosage: 3000 IU
     Route: 042

REACTIONS (2)
  - Haemorrhage [Recovering/Resolving]
  - Influenza [Recovering/Resolving]

NARRATIVE: CASE EVENT DATE: 20221001
